FAERS Safety Report 19718620 (Version 1)
Quarter: 2021Q3

REPORT INFORMATION
  Report Type: Spontaneous
  Country: US (occurrence: US)
  Receive Date: 20210818
  Receipt Date: 20210818
  Transmission Date: 20211014
  Serious: Yes (Death)
  Sender: FDA-Public Use
  Company Number: None

PATIENT
  Sex: Male

DRUGS (13)
  1. AMOXICILLIN. [Concomitant]
     Active Substance: AMOXICILLIN
  2. SENNA [Concomitant]
     Active Substance: SENNA LEAF\SENNOSIDES\SENNOSIDES A AND B
  3. MEKTOVI [Suspect]
     Active Substance: BINIMETINIB
     Indication: LYMPHOMA
  4. DEXAMETHASONE. [Concomitant]
     Active Substance: DEXAMETHASONE
  5. PANTOPRAZOLE [Concomitant]
     Active Substance: PANTOPRAZOLE
  6. FINASTERIDE. [Concomitant]
     Active Substance: FINASTERIDE
  7. TYLENOL [Concomitant]
     Active Substance: ACETAMINOPHEN
  8. MEKTOVI [Suspect]
     Active Substance: BINIMETINIB
     Indication: SKIN CANCER
  9. BRAFTOVI [Suspect]
     Active Substance: ENCORAFENIB
  10. TAMSULOSIN [Concomitant]
     Active Substance: TAMSULOSIN
  11. LEVOTHYROXINE. [Concomitant]
     Active Substance: LEVOTHYROXINE
  12. OXYCODONE [Concomitant]
     Active Substance: OXYCODONE
  13. TIZANIDINE. [Concomitant]
     Active Substance: TIZANIDINE

REACTIONS (1)
  - Death [None]
